FAERS Safety Report 9781764 (Version 2)
Quarter: 2014Q1

REPORT INFORMATION
  Report Type: Spontaneous
  Country: US (occurrence: US)
  Receive Date: 20131225
  Receipt Date: 20140111
  Transmission Date: 20141002
  Serious: Yes (Other)
  Sender: FDA-Public Use
  Company Number: US-AMGEN-USASP2013089970

PATIENT
  Age: 82 Year
  Sex: Female
  Weight: 44.9 kg

DRUGS (6)
  1. PROLIA [Suspect]
     Indication: PRODUCT USED FOR UNKNOWN INDICATION
     Dosage: 1 ML, ONE TIME DOSE
     Route: 058
     Dates: start: 20130617, end: 20130617
  2. SYNTHROID [Concomitant]
     Indication: HYPOTHYROIDISM
     Route: 048
  3. EVISTA [Concomitant]
     Indication: OSTEOPOROSIS
     Route: 048
  4. GABAPENTIN [Concomitant]
     Indication: NERVOUS SYSTEM DISORDER
     Dosage: UNK UNK, TID
     Route: 048
  5. ESCITALOPRAM [Concomitant]
     Indication: DEPRESSION
     Dosage: UNK UNK, QD
     Route: 048
  6. LORAZEPAM [Concomitant]
     Indication: ANXIETY
     Dosage: UNK UNK, QHS
     Route: 048

REACTIONS (1)
  - Hypersensitivity vasculitis [Unknown]
